FAERS Safety Report 13575047 (Version 2)
Quarter: 2017Q2

REPORT INFORMATION
  Report Type: Spontaneous
  Country: US (occurrence: US)
  Receive Date: 20170523
  Receipt Date: 20170601
  Transmission Date: 20170830
  Serious: No
  Sender: FDA-Public Use
  Company Number: US-ASTRAZENECA-2017SE54524

PATIENT
  Sex: Male
  Weight: 74.8 kg

DRUGS (1)
  1. RHINOCORT ALLERGY [Suspect]
     Active Substance: BUDESONIDE
     Indication: PRODUCT USED FOR UNKNOWN INDICATION
     Dosage: 2.0DF ONCE/SINGLE ADMINISTRATION
     Route: 045
     Dates: start: 20170515, end: 20170515

REACTIONS (1)
  - Vision blurred [Recovered/Resolved]

NARRATIVE: CASE EVENT DATE: 20170516
